FAERS Safety Report 25278067 (Version 2)
Quarter: 2025Q3

REPORT INFORMATION
  Report Type: Spontaneous
  Country: EU (occurrence: EU)
  Receive Date: 20250507
  Receipt Date: 20250809
  Transmission Date: 20251021
  Serious: Yes (Other)
  Sender: ALEXION PHARMACEUTICALS
  Company Number: EU-ASTRAZENECA-202504EEA028430FR

PATIENT
  Sex: Female

DRUGS (2)
  1. ULTOMIRIS [Suspect]
     Active Substance: RAVULIZUMAB-CWVZ
     Route: 065
  2. VOYDEYA [Suspect]
     Active Substance: DANICOPAN
     Route: 065

REACTIONS (3)
  - Haemoglobin decreased [Unknown]
  - Thalassaemia [Unknown]
  - Product supply issue [Unknown]
